FAERS Safety Report 18054882 (Version 3)
Quarter: 2020Q3

REPORT INFORMATION
  Report Type: Spontaneous
  Country: PK (occurrence: PK)
  Receive Date: 20200722
  Receipt Date: 20200817
  Transmission Date: 20201103
  Serious: Yes (Hospitalization, Other)
  Sender: FDA-Public Use
  Company Number: PK-NOVOPROD-741713

PATIENT
  Age: 55 Year
  Sex: Male
  Weight: 78 kg

DRUGS (3)
  1. NOVOMIX 30 FLEXPEN [Suspect]
     Active Substance: INSULIN ASPART
     Indication: TYPE 2 DIABETES MELLITUS
     Dosage: UNK
     Route: 058
     Dates: start: 20160701
  2. NOVOMIX 30 FLEXPEN [Suspect]
     Active Substance: INSULIN ASPART
     Dosage: 28+30 UNITS (DOSE INCREASED)
     Route: 058
     Dates: start: 20200615, end: 20200618
  3. NOVOMIX 30 FLEXPEN [Suspect]
     Active Substance: INSULIN ASPART
     Dosage: 28+30 UNITS (RESTARTED WITH SAME DOSE)
     Route: 058
     Dates: start: 20200619

REACTIONS (3)
  - Lower limb fracture [Not Recovered/Not Resolved]
  - Blood glucose increased [Unknown]
  - Accident [Not Recovered/Not Resolved]

NARRATIVE: CASE EVENT DATE: 202006
